FAERS Safety Report 9870701 (Version 2)
Quarter: 2014Q1

REPORT INFORMATION
  Report Type: Report from Study
  Country: GB (occurrence: GB)
  Receive Date: 20140205
  Receipt Date: 20140225
  Transmission Date: 20141002
  Serious: Yes (Hospitalization)
  Sender: FDA-Public Use
  Company Number: GB-ROCHE-1341334

PATIENT
  Age: 52 Year
  Sex: Female

DRUGS (4)
  1. PERTUZUMAB [Suspect]
     Indication: BREAST CANCER
     Dosage: 840 MG ON DAY 1 OF CYCLE 1, LOADING DOSE
     Route: 042
     Dates: start: 20140116
  2. TRASTUZUMAB [Suspect]
     Indication: BREAST CANCER
     Dosage: 8 MG/KG ON DAY 1 OF CYCLE 1, (441 MG)
     Route: 042
     Dates: start: 20140117
  3. DOCETAXEL [Suspect]
     Indication: BREAST CANCER
     Route: 042
     Dates: start: 20140117
  4. MEROPENEM [Concomitant]
     Route: 065
     Dates: start: 20140124, end: 20140127

REACTIONS (1)
  - Pyrexia [Recovered/Resolved]
